FAERS Safety Report 21714012 (Version 1)
Quarter: 2022Q4

REPORT INFORMATION
  Report Type: Spontaneous
  Country: US (occurrence: None)
  Receive Date: 20221209
  Receipt Date: 20221209
  Transmission Date: 20230112
  Serious: Yes (Hospitalization)
  Sender: FDA-Public Use
  Company Number: None

PATIENT
  Age: 74 Year
  Sex: Male

DRUGS (1)
  1. RIVAROXABAN [Suspect]
     Active Substance: RIVAROXABAN
     Dates: start: 20220713

REACTIONS (3)
  - Haemorrhage [None]
  - Subdural haematoma [None]
  - Fall [None]

NARRATIVE: CASE EVENT DATE: 20220713
